FAERS Safety Report 4284888-3 (Version None)
Quarter: 2004Q1

REPORT INFORMATION
  Report Type: 
  Country: None (occurrence: None)
  Receive Date: 20040203
  Receipt Date: 20040203
  Transmission Date: 20041129
  Serious: Yes (Hospitalization)
  Sender: FDA-Public Use
  Company Number: None

PATIENT
  Age: 61 Year
  Sex: Female
  Weight: 96.1626 kg

DRUGS (2)
  1. DOCETAXEL 75MG/M2 [Suspect]
     Indication: PERITONEAL CARCINOMA
     Dosage: 150 MG Q 21 DAYS
     Dates: start: 20040122
  2. GEMCITABINE 800MG/M2 [Suspect]
     Indication: PERITONEAL CARCINOMA
     Dosage: 1600 MG DAY 1+8
     Dates: start: 20040122, end: 20040130

REACTIONS (1)
  - ASCITES [None]
